FAERS Safety Report 23718781 (Version 2)
Quarter: 2024Q3

REPORT INFORMATION
  Report Type: Spontaneous
  Country: IL (occurrence: IL)
  Receive Date: 20240408
  Receipt Date: 20240703
  Transmission Date: 20241017
  Serious: Yes (Death, Other)
  Sender: BRISTOL MYERS SQUIBB
  Company Number: IL-BRISTOL-MYERS SQUIBB COMPANY-2024-052049

PATIENT
  Age: 71 Year
  Sex: Male

DRUGS (1)
  1. OPDUALAG [Suspect]
     Active Substance: NIVOLUMAB\RELATLIMAB-RMBW
     Indication: Malignant melanoma
     Dosage: 480 MG NIVOLUMAB AND 160 MG RELATLIMAB EVERY 4 WEEKS
     Route: 042
     Dates: start: 20230716, end: 20240208

REACTIONS (6)
  - Capillary leak syndrome [Fatal]
  - Weight increased [Unknown]
  - Decreased appetite [Unknown]
  - Thirst [Unknown]
  - Pleural effusion [Recovering/Resolving]
  - Dyspnoea [Unknown]

NARRATIVE: CASE EVENT DATE: 20240201
